FAERS Safety Report 4610051-X (Version None)
Quarter: 2005Q1

REPORT INFORMATION
  Report Type: 
  Country: None (occurrence: None)
  Receive Date: 20050315
  Receipt Date: 20050310
  Transmission Date: 20050727
  Serious: Yes (Life-Threatening)
  Sender: FDA-Public Use
  Company Number: 2005GB00397

PATIENT
  Age: 42 Year
  Sex: Female
  Weight: 52.4 kg

DRUGS (3)
  1. SEROQUEL [Suspect]
     Indication: PSYCHOTIC DISORDER
     Dosage: 100 MG PO
     Route: 048
     Dates: start: 20050203, end: 20050203
  2. DIAZEPAM [Concomitant]
  3. OLANZAPINE [Concomitant]

REACTIONS (4)
  - CARDIAC ARREST [None]
  - COMMUNICATION DISORDER [None]
  - FOREIGN BODY ASPIRATION [None]
  - RESPIRATORY ARREST [None]
